FAERS Safety Report 5496768-6 (Version None)
Quarter: 2007Q4

REPORT INFORMATION
  Report Type: 
  Country: None (occurrence: None)
  Receive Date: 20071023
  Receipt Date: 20071011
  Transmission Date: 20080405
  Serious: Yes (Hospitalization, Other)
  Sender: FDA-Public Use
  Company Number: 2007BI019231

PATIENT
  Age: 57 Year
  Sex: Male

DRUGS (23)
  1. ZEVALIN [Suspect]
     Indication: BONE MARROW CONDITIONING REGIMEN
     Dosage: 890 MBQ;1X;IV
     Route: 042
     Dates: start: 20070208, end: 20070208
  2. TAZOCILLINE [Concomitant]
  3. FORTUM [Concomitant]
  4. MABTHERA [Concomitant]
  5. ETOPOSIDE-TEVA [Concomitant]
  6. CYTARABINE [Concomitant]
  7. BICNU [Concomitant]
  8. ALKERAN [Concomitant]
  9. KEPIVANCE [Concomitant]
  10. CIFLOX [Concomitant]
  11. FLAGYL [Concomitant]
  12. VANCOMYCIN HCL [Concomitant]
  13. TIENAM [Concomitant]
  14. CASPOFUNGIN [Concomitant]
  15. VORICONAZOLE [Concomitant]
  16. AMBISOME [Concomitant]
  17. ZELITREX [Concomitant]
  18. ZOVIRAX [Concomitant]
  19. BACTRIM [Concomitant]
  20. AMIKLIN [Concomitant]
  21. HEPARIN [Concomitant]
  22. ZOFRAN [Concomitant]
  23. EMEND [Concomitant]

REACTIONS (10)
  - APLASIA [None]
  - CHOLESTASIS [None]
  - CLOSTRIDIAL INFECTION [None]
  - CULTURE STOOL POSITIVE [None]
  - ESCHERICHIA INFECTION [None]
  - FEBRILE NEUTROPENIA [None]
  - LUNG NEOPLASM [None]
  - PANCYTOPENIA [None]
  - RESPIRATORY SYNCYTIAL VIRUS INFECTION [None]
  - VENOOCCLUSIVE LIVER DISEASE [None]
